FAERS Safety Report 7512607-3 (Version None)
Quarter: 2011Q2

REPORT INFORMATION
  Report Type: 
  Country: None (occurrence: None)
  Receive Date: 20110520
  Receipt Date: 20110509
  Transmission Date: 20111010
  Serious: Yes (Hospitalization, Other)
  Sender: FDA-Public Use
  Company Number: 2010SP046934

PATIENT
  Age: 26 Year
  Sex: Female
  Weight: 63.5036 kg

DRUGS (6)
  1. NUVARING [Suspect]
     Indication: MENSTRUAL DISORDER
     Dates: start: 20060801, end: 20081001
  2. NIPEREX [Suspect]
     Indication: IRON DEFICIENCY ANAEMIA
     Dates: start: 20080901
  3. COREG [Concomitant]
  4. PERCOCET [Suspect]
     Indication: PAIN MANAGEMENT
     Dates: start: 20080901, end: 20081001
  5. MORTIN [Suspect]
     Indication: HEADACHE
     Dosage: 500 MG; PRN;
     Dates: start: 19900101, end: 20081005
  6. TYLENOL-500 [Concomitant]

REACTIONS (25)
  - FEELING ABNORMAL [None]
  - DRUG HYPERSENSITIVITY [None]
  - URINARY TRACT INFECTION [None]
  - GASTRITIS [None]
  - MASS [None]
  - POST CONCUSSION SYNDROME [None]
  - PULMONARY INFARCTION [None]
  - HEAD INJURY [None]
  - ATTENTION DEFICIT/HYPERACTIVITY DISORDER [None]
  - TRAUMATIC BRAIN INJURY [None]
  - ANXIETY [None]
  - CONSTIPATION [None]
  - PICA [None]
  - PULMONARY EMBOLISM [None]
  - MENINGIOMA [None]
  - VERTIGO [None]
  - DYSMENORRHOEA [None]
  - PLEURITIC PAIN [None]
  - IRON DEFICIENCY ANAEMIA [None]
  - VOMITING [None]
  - ROAD TRAFFIC ACCIDENT [None]
  - MEMORY IMPAIRMENT [None]
  - HEADACHE [None]
  - ADJUSTMENT DISORDER [None]
  - PAIN [None]
